FAERS Safety Report 5130368-2 (Version None)
Quarter: 2006Q4

REPORT INFORMATION
  Report Type: 
  Country: None (occurrence: None)
  Receive Date: 20061019
  Receipt Date: 20061013
  Transmission Date: 20070319
  Serious: Yes (Hospitalization)
  Sender: FDA-Public Use
  Company Number: DE-BRACCO-BRO-010740

PATIENT
  Sex: Female

DRUGS (3)
  1. MULTIHANCE [Suspect]
     Indication: HEADACHE
     Route: 042
     Dates: start: 20060925, end: 20060925
  2. MULTIHANCE [Suspect]
     Route: 042
     Dates: start: 20060925, end: 20060925
  3. METFORMIN HCL [Concomitant]
     Route: 050

REACTIONS (7)
  - AGITATION [None]
  - ANXIETY [None]
  - BLOOD PRESSURE IMMEASURABLE [None]
  - DRY THROAT [None]
  - HYPERSENSITIVITY [None]
  - HYPERVENTILATION [None]
  - NAUSEA [None]
